FAERS Safety Report 19815120 (Version 1)
Quarter: 2021Q3

REPORT INFORMATION
  Report Type: Spontaneous
  Country: US (occurrence: US)
  Receive Date: 20210907
  Receipt Date: 20210907
  Transmission Date: 20211014
  Serious: Yes (Hospitalization)
  Sender: FDA-Public Use
  Company Number: None

PATIENT
  Sex: Female

DRUGS (11)
  1. PANTOPRAZOLE [Concomitant]
     Active Substance: PANTOPRAZOLE
  2. FISH OIL [Concomitant]
     Active Substance: FISH OIL
  3. URSODIOL. [Concomitant]
     Active Substance: URSODIOL
  4. GABAPENTIN. [Concomitant]
     Active Substance: GABAPENTIN
  5. ADCIRCA [Concomitant]
     Active Substance: TADALAFIL
  6. ATORVASTATIN [Concomitant]
     Active Substance: ATORVASTATIN
  7. VITAMIN B COMPLEX [Concomitant]
     Active Substance: CYANOCOBALAMIN\DEXPANTHENOL\NIACINAMIDE\PYRIDOXINE HYDROCHLORIDE\RIBOFLAVIN 5^-PHOSPHATE SODIUM\THIAMINE HYDROCHLORIDE\VITAMIN B COMPLEX
  8. VITAMIN C [Concomitant]
     Active Substance: ASCORBIC ACID
  9. TADALAFIL 20 MG TAB [Suspect]
     Active Substance: TADALAFIL
     Indication: PULMONARY HYPERTENSION
     Dosage: TAKE 2 TABLETS BY MOUTH EVERY DAY
     Route: 048
     Dates: start: 20181009
  10. NORTRIPTYLIN [Concomitant]
     Active Substance: NORTRIPTYLINE
  11. WARFARIN [Concomitant]
     Active Substance: WARFARIN

REACTIONS (1)
  - Lower limb fracture [None]
